FAERS Safety Report 9394392 (Version 2)
Quarter: 2013Q3

REPORT INFORMATION
  Report Type: Report from Study
  Country: US (occurrence: US)
  Receive Date: 20130711
  Receipt Date: 20130717
  Transmission Date: 20140515
  Serious: Yes (Other)
  Sender: FDA-Public Use
  Company Number: US-BAYER-2013-081324

PATIENT
  Age: 66 Year
  Sex: Female

DRUGS (3)
  1. BETASERON [Suspect]
     Indication: MULTIPLE SCLEROSIS
     Dosage: 2 MIU, QOD
     Route: 058
     Dates: start: 20130626, end: 20130630
  2. IBUPROFEN [Concomitant]
     Indication: PREMEDICATION
  3. TEKTURNA [Concomitant]
     Indication: HYPERTENSION

REACTIONS (13)
  - Condition aggravated [Not Recovered/Not Resolved]
  - Influenza like illness [None]
  - Dizziness [Recovering/Resolving]
  - Asthenia [None]
  - Nausea [None]
  - Chills [None]
  - Feeling hot [None]
  - Cough [None]
  - Blood pressure increased [Recovering/Resolving]
  - Dizziness [Recovering/Resolving]
  - Headache [Not Recovered/Not Resolved]
  - Nausea [Not Recovered/Not Resolved]
  - Blood pressure increased [Not Recovered/Not Resolved]
